FAERS Safety Report 18243865 (Version 1)
Quarter: 2020Q3

REPORT INFORMATION
  Report Type: Spontaneous
  Country: HU (occurrence: HU)
  Receive Date: 20200908
  Receipt Date: 20200908
  Transmission Date: 20201103
  Serious: Yes (Hospitalization, Other)
  Sender: FDA-Public Use
  Company Number: NVSC2020HU242882

PATIENT
  Age: 49 Year
  Sex: Male

DRUGS (4)
  1. SALAZOPYRIN [Concomitant]
     Active Substance: SULFASALAZINE
     Indication: PRODUCT USED FOR UNKNOWN INDICATION
     Dosage: 1000 MG, BID
     Route: 065
     Dates: start: 2019
  2. HUMIRA [Concomitant]
     Active Substance: ADALIMUMAB
     Indication: PRODUCT USED FOR UNKNOWN INDICATION
     Dosage: UNK
     Route: 065
     Dates: start: 201908, end: 202001
  3. SECUKINUMAB. [Suspect]
     Active Substance: SECUKINUMAB
     Indication: PRODUCT USED FOR UNKNOWN INDICATION
     Dosage: UNK
     Route: 065
     Dates: start: 202001
  4. METHOTREXATE. [Suspect]
     Active Substance: METHOTREXATE
     Indication: POLYARTHRITIS
     Dosage: UNK
     Route: 065
     Dates: start: 2005

REACTIONS (20)
  - Polyarthritis [Unknown]
  - Sacroiliitis [Unknown]
  - Intervertebral disc protrusion [Unknown]
  - Hypoaesthesia [Not Recovered/Not Resolved]
  - Skin disorder [Recovering/Resolving]
  - Carbohydrate metabolism disorder [Unknown]
  - Central nervous system lesion [Unknown]
  - Loss of consciousness [Unknown]
  - Ill-defined disorder [Not Recovered/Not Resolved]
  - Diabetes mellitus [Unknown]
  - Diabetic neuropathy [Unknown]
  - Pain in extremity [Not Recovered/Not Resolved]
  - Spinal pain [Recovering/Resolving]
  - Musculoskeletal stiffness [Recovering/Resolving]
  - Cerebral infarction [Unknown]
  - Ketoacidosis [Unknown]
  - Malaise [Unknown]
  - Intervertebral disc disorder [Unknown]
  - Product use in unapproved indication [Unknown]
  - Spondyloarthropathy [Unknown]

NARRATIVE: CASE EVENT DATE: 2017
